FAERS Safety Report 10340144 (Version 3)
Quarter: 2017Q2

REPORT INFORMATION
  Report Type: Spontaneous
  Country: US (occurrence: US)
  Receive Date: 20140724
  Receipt Date: 20170418
  Transmission Date: 20170829
  Serious: No
  Sender: FDA-Public Use
  Company Number: US-009507513-1407USA007651

PATIENT
  Age: 32 Year
  Sex: Female

DRUGS (7)
  1. LOPINAVIR (+) RITONAVIR [Suspect]
     Active Substance: LOPINAVIR\RITONAVIR
     Indication: HIV INFECTION
     Dosage: 4 DF, QD
     Route: 048
     Dates: end: 20130725
  2. TRUVADA [Suspect]
     Active Substance: EMTRICITABINE\TENOFOVIR DISOPROXIL FUMARATE
     Dosage: 1 DF, QD
     Route: 048
     Dates: start: 2013
  3. RETROVIR [Suspect]
     Active Substance: ZIDOVUDINE
     Indication: HIV INFECTION
     Dosage: TOTAL DAILY DOSE: 2 MG/KG/HR, COURSE 1
     Route: 042
     Dates: start: 20131029, end: 20131030
  4. TRUVADA [Suspect]
     Active Substance: EMTRICITABINE\TENOFOVIR DISOPROXIL FUMARATE
     Indication: HIV INFECTION
     Dosage: TOTAL DAILY DOSE: 2 TAB/CAPS, COURSE 1
     Route: 048
     Dates: start: 20130725
  5. COMBIVIR [Suspect]
     Active Substance: LAMIVUDINE\ZIDOVUDINE
     Indication: HIV INFECTION
     Dosage: 2 DF, QD, TOTAL DAILY DOSE: 2 TAB/CAPS, COURSE 1
     Route: 048
     Dates: end: 20130725
  6. ISENTRESS [Suspect]
     Active Substance: RALTEGRAVIR POTASSIUM
     Indication: HIV INFECTION
     Dosage: 800 MG/DAY, COURSE 1
     Route: 048
     Dates: start: 20130725
  7. RETROVIR [Suspect]
     Active Substance: ZIDOVUDINE
     Dosage: TOTAL DAILY DOSE: 1 MG/KG/HR, COURSE 2
     Route: 042
     Dates: start: 20131030, end: 20131030

REACTIONS (2)
  - Prolonged labour [Recovered/Resolved]
  - Exposure during pregnancy [Recovered/Resolved]

NARRATIVE: CASE EVENT DATE: 20131030
